FAERS Safety Report 9581885 (Version 1)
Quarter: 2013Q4

REPORT INFORMATION
  Report Type: Spontaneous
  Country: US (occurrence: US)
  Receive Date: 20131002
  Receipt Date: 20131002
  Transmission Date: 20140711
  Serious: No
  Sender: FDA-Public Use
  Company Number: US-PURDUE-USA-2012-0082106

PATIENT
  Sex: Female

DRUGS (3)
  1. BUTRANS [Suspect]
     Indication: PAIN
     Dosage: 20 MCG, Q1H
     Route: 062
  2. BUTRANS [Suspect]
     Dosage: 10 MCG, Q1H
     Route: 062
  3. OXYCODONE HCL CR TABLETS (SIMILAR TO NDA 22-272) [Concomitant]
     Indication: ANALGESIC THERAPY
     Dosage: UNK

REACTIONS (3)
  - Inadequate analgesia [Unknown]
  - Nausea [Unknown]
  - Vomiting [Unknown]
